FAERS Safety Report 9336439 (Version 1)
Quarter: 2013Q2

REPORT INFORMATION
  Report Type: Report from Study
  Country: US (occurrence: US)
  Receive Date: 20130607
  Receipt Date: 20130607
  Transmission Date: 20140414
  Serious: Yes (Other)
  Sender: FDA-Public Use
  Company Number: US-JNJFOC-20130521989

PATIENT
  Age: 67 Year
  Sex: Male
  Weight: 99.79 kg

DRUGS (2)
  1. STELARA [Suspect]
     Indication: PSORIASIS
     Route: 058
     Dates: start: 201207
  2. STELARA [Suspect]
     Indication: PSORIASIS
     Route: 058

REACTIONS (2)
  - Cardiac operation [Unknown]
  - Psoriasis [Unknown]
